FAERS Safety Report 9102487 (Version 2)
Quarter: 2013Q2

REPORT INFORMATION
  Report Type: Spontaneous
  Country: IT (occurrence: IT)
  Receive Date: 20130218
  Receipt Date: 20130404
  Transmission Date: 20140414
  Serious: Yes (Hospitalization)
  Sender: FDA-Public Use
  Company Number: IT-TEVA-386527ISR

PATIENT
  Age: 67 Year
  Sex: Female

DRUGS (4)
  1. PACLITAXEL TEVA [Suspect]
     Indication: OVARIAN CANCER
     Dosage: 200 MG CYCLICAL
     Route: 041
     Dates: start: 20121023, end: 20130207
  2. CARBOPLATINO [Suspect]
     Indication: OVARIAN CANCER
     Dosage: 400 MG CYCLICAL
     Route: 041
     Dates: start: 20121023, end: 20130207
  3. PLASIL [Concomitant]
  4. SOLDESAM [Concomitant]

REACTIONS (2)
  - Abdominal pain upper [Recovered/Resolved]
  - Flushing [Recovered/Resolved]
